FAERS Safety Report 20906370 (Version 1)
Quarter: 2022Q2

REPORT INFORMATION
  Report Type: Spontaneous
  Country: US (occurrence: None)
  Receive Date: 20220530
  Receipt Date: 20220530
  Transmission Date: 20220721
  Serious: Yes (Hospitalization)
  Sender: FDA-Public Use
  Company Number: None

PATIENT
  Age: 14 Year
  Sex: Female
  Weight: 52.2 kg

DRUGS (6)
  1. CYTARABINE [Suspect]
     Active Substance: CYTARABINE
     Dates: end: 20220509
  2. DAUNORUBICIN [Suspect]
     Active Substance: DAUNORUBICIN
     Dates: end: 20220523
  3. METHOTREXATE [Suspect]
     Active Substance: METHOTREXATE
     Dates: end: 20220517
  4. ONCASPAR [Suspect]
     Active Substance: PEGASPARGASE
     Dates: end: 20220513
  5. PREDNISOLONE [Suspect]
     Active Substance: PREDNISOLONE
     Dates: end: 20220528
  6. VINCRISTINE SULFATE [Suspect]
     Active Substance: VINCRISTINE SULFATE
     Dates: end: 20220523

REACTIONS (35)
  - Peripheral swelling [None]
  - Contusion [None]
  - Dyspnoea [None]
  - Body temperature increased [None]
  - Blood glucose decreased [None]
  - Hypotension [None]
  - Heart rate increased [None]
  - White blood cell count decreased [None]
  - Haemoglobin decreased [None]
  - Activated partial thromboplastin time prolonged [None]
  - Blood creatinine increased [None]
  - Aspartate aminotransferase increased [None]
  - Alanine aminotransferase increased [None]
  - Blood sodium decreased [None]
  - Procalcitonin increased [None]
  - C-reactive protein increased [None]
  - Total lung capacity decreased [None]
  - Oxygen saturation decreased [None]
  - Tachypnoea [None]
  - Disorientation [None]
  - Prothrombin time prolonged [None]
  - Macule [None]
  - Skin ulcer [None]
  - Ecchymosis [None]
  - Petechiae [None]
  - Pedal pulse decreased [None]
  - Heart sounds abnormal [None]
  - Wheezing [None]
  - Infusion site extravasation [None]
  - Cardiac dysfunction [None]
  - Anaemia [None]
  - Coagulopathy [None]
  - Thrombocytopenia [None]
  - Necrotising fasciitis [None]
  - Bacterial infection [None]

NARRATIVE: CASE EVENT DATE: 20220528
